FAERS Safety Report 7482829-9 (Version None)
Quarter: 2011Q2

REPORT INFORMATION
  Report Type: 
  Country: None (occurrence: None)
  Receive Date: 20110516
  Receipt Date: 20100930
  Transmission Date: 20111010
  Serious: Yes (Hospitalization)
  Sender: FDA-Public Use
  Company Number: PHHY2010DE92138

PATIENT
  Sex: Female

DRUGS (1)
  1. EXTAVIA [Suspect]
     Dosage: UNK
     Route: 058
     Dates: start: 20100820

REACTIONS (3)
  - HAEMOGLOBIN DECREASED [None]
  - GASTRIC ULCER [None]
  - GASTRIC HAEMORRHAGE [None]
